FAERS Safety Report 24251605 (Version 1)
Quarter: 2024Q3

REPORT INFORMATION
  Report Type: Spontaneous
  Country: CN (occurrence: CN)
  Receive Date: 20240827
  Receipt Date: 20240827
  Transmission Date: 20241016
  Serious: Yes (Hospitalization)
  Sender: NOVO NORDISK
  Company Number: CN-NOVOPROD-1270692

PATIENT
  Age: 78 Year
  Sex: Female
  Weight: 64 kg

DRUGS (3)
  1. INSULIN ASPART [Suspect]
     Active Substance: INSULIN ASPART
     Dosage: PRE-MEAL INSULIN DOSE WAS ADJUSTED TO 5 U ON THE THIRD DAY, AND THE TOTAL BASAL INSULIN WAS REDUCED
     Route: 058
  2. INSULIN ASPART [Suspect]
     Active Substance: INSULIN ASPART
     Indication: Type 2 diabetes mellitus
     Dosage: PRE-MEAL DOSE WAS SET AT 3 U, WITH A TOTAL BASAL INSULIN AMOUNT OF APPROXIMATELY 13 U, DIVIDED INTO
     Route: 058
  3. THIOCTIC ACID [Concomitant]
     Active Substance: THIOCTIC ACID
     Indication: Type 2 diabetes mellitus
     Dosage: 0.45 G, QD
     Route: 042

REACTIONS (1)
  - Insulin autoimmune syndrome [Recovered/Resolved]
